FAERS Safety Report 24595162 (Version 1)
Quarter: 2024Q4

REPORT INFORMATION
  Report Type: Spontaneous
  Country: US (occurrence: US)
  Receive Date: 20241108
  Receipt Date: 20241108
  Transmission Date: 20250115
  Serious: Yes (Life-Threatening, Other)
  Sender: FRESENIUS KABI
  Company Number: US-FreseniusKabi-FK202416473

PATIENT
  Age: 69 Year
  Sex: Female
  Weight: 55.6 kg

DRUGS (1)
  1. PENTAM 300 [Suspect]
     Active Substance: PENTAMIDINE ISETHIONATE
     Indication: Stem cell transplant
     Dosage: FORM OF ADMINISTRATION: INJECTION FOR INFUSION?DOSE: 300 MG IN 100 ML D5W, INFUSED OVER 2 HOURS
     Route: 041
     Dates: start: 20231212, end: 20241030

REACTIONS (4)
  - Agonal respiration [Recovered/Resolved]
  - Pulse abnormal [Recovered/Resolved]
  - Unresponsive to stimuli [Recovered/Resolved]
  - Off label use [Unknown]

NARRATIVE: CASE EVENT DATE: 20241030
